FAERS Safety Report 6063419-1 (Version None)
Quarter: 2009Q1

REPORT INFORMATION
  Report Type: 
  Country: None (occurrence: None)
  Receive Date: 20090203
  Receipt Date: 20090121
  Transmission Date: 20090719
  Serious: Yes (Other)
  Sender: FDA-Public Use
  Company Number: US-ELI_LILLY_AND_COMPANY-US200812004528

PATIENT
  Age: 80 Year
  Sex: Female
  Weight: 61.678 kg

DRUGS (5)
  1. CYMBALTA [Suspect]
     Indication: NEURALGIA
     Dosage: 60 MG, UNK
     Dates: start: 20081113, end: 20090106
  2. LEVOTHYROXINE [Concomitant]
     Dosage: 0.088 MG, UNK
  3. FOSAMAX [Concomitant]
     Indication: OSTEOPOROSIS
     Dosage: 30 MG, UNK
  4. CHOLESTYRAMINE [Concomitant]
     Indication: HYPERCHOLESTEROLAEMIA
     Dosage: 2 D/F, UNK
  5. OXYBUTIN [Concomitant]
     Indication: BLADDER DISORDER
     Dosage: 5 MG, AS NEEDED

REACTIONS (2)
  - DIZZINESS [None]
  - HEPATITIS [None]
